FAERS Safety Report 11928601 (Version 1)
Quarter: 2016Q1

REPORT INFORMATION
  Report Type: Spontaneous
  Country: US (occurrence: US)
  Receive Date: 20160119
  Receipt Date: 20160119
  Transmission Date: 20160526
  Serious: Yes (Death, Life-Threatening, Hospitalization)
  Sender: FDA-Public Use
  Company Number: US-ELI_LILLY_AND_COMPANY-US201601006560

PATIENT
  Age: 59 Year
  Sex: Female

DRUGS (2)
  1. OLANZAPINE. [Suspect]
     Active Substance: OLANZAPINE
     Indication: VOMITING
     Dosage: UNK, UNKNOWN
     Route: 065
  2. HYDROMORPHONE [Concomitant]
     Active Substance: HYDROMORPHONE
     Indication: PAIN
     Dosage: UNK, UNKNOWN
     Route: 065

REACTIONS (5)
  - Cardiac arrest [Unknown]
  - Dyspnoea [Unknown]
  - Septic shock [Fatal]
  - Off label use [Unknown]
  - Respiratory distress [Unknown]
